FAERS Safety Report 18291977 (Version 2)
Quarter: 2022Q1

REPORT INFORMATION
  Report Type: Other
  Country: CA (occurrence: CA)
  Receive Date: 20200922
  Receipt Date: 20220127
  Transmission Date: 20220423
  Serious: Yes (Other)
  Sender: FDA-Public Use
  Company Number: CA-CELLTRION INC.-2020CA025951

PATIENT

DRUGS (10)
  1. RITUXIMAB [Suspect]
     Active Substance: RITUXIMAB
     Indication: Autoimmune retinopathy
     Dosage: 1000.0 MILLIGRAM 1 EVERY 2 WEEKS
     Route: 042
  2. RITUXIMAB [Suspect]
     Active Substance: RITUXIMAB
     Dosage: 2.0 DOSAGE FORMS
     Route: 042
  3. RITUXIMAB [Suspect]
     Active Substance: RITUXIMAB
     Dosage: 1 GRAM
     Route: 042
  4. AZATHIOPRINE [Suspect]
     Active Substance: AZATHIOPRINE
     Indication: Autoimmune retinopathy
     Dosage: 150.0 MILLIGRAM, 1 EVERY 24 HOURS
     Route: 048
  5. BORTEZOMIB [Suspect]
     Active Substance: BORTEZOMIB
     Indication: Autoimmune retinopathy
     Dosage: 1.5 MG/M2
     Route: 058
  6. DEXAMETHASONE [Suspect]
     Active Substance: DEXAMETHASONE
     Indication: Autoimmune retinopathy
     Dosage: 8.0 MILLIGRAM
     Route: 048
  7. METHOTREXATE [Suspect]
     Active Substance: METHOTREXATE
     Indication: Autoimmune retinopathy
     Dosage: 25.0 MILLIGRAM, 1 EVERY 1 WEEK
     Route: 058
  8. LEUCOVORIN [Concomitant]
     Active Substance: LEUCOVORIN
     Indication: Autoimmune retinopathy
     Dosage: 5.0 MILLIGRAM, 1 EVERY 24 HOURS
     Route: 065
  9. ONDANSETRON [Concomitant]
     Active Substance: ONDANSETRON
     Indication: Antiemetic supportive care
     Route: 065
  10. VALACYCLOVIR   /01269701/ [Concomitant]
     Indication: Antiviral prophylaxis
     Route: 065

REACTIONS (10)
  - Autoimmune retinopathy [Unknown]
  - Disease progression [Unknown]
  - Epigastric discomfort [Unknown]
  - Hepatotoxicity [Unknown]
  - Constipation [Unknown]
  - Fatigue [Unknown]
  - Injection site inflammation [Unknown]
  - Drug ineffective [Unknown]
  - Therapy non-responder [Unknown]
  - Off label use [Unknown]
